FAERS Safety Report 9674242 (Version 2)
Quarter: 2013Q4

REPORT INFORMATION
  Report Type: Report from Study
  Country: US (occurrence: US)
  Receive Date: 20131107
  Receipt Date: 20131107
  Transmission Date: 20140711
  Serious: Yes (Other)
  Sender: FDA-Public Use
  Company Number: US-ABBVIE-13P-163-1151519-00

PATIENT
  Age: 61 Year
  Sex: Female

DRUGS (2)
  1. HUMIRA [Suspect]
     Indication: APLASIA PURE RED CELL
  2. HUMIRA [Suspect]
     Indication: RHEUMATOID ARTHRITIS
     Dates: start: 20130916

REACTIONS (7)
  - Scleritis [Not Recovered/Not Resolved]
  - Abnormal sensation in eye [Unknown]
  - Cataract [Unknown]
  - Arthralgia [Unknown]
  - Photophobia [Unknown]
  - Dry eye [Unknown]
  - Contusion [Unknown]
